FAERS Safety Report 4915890-3 (Version None)
Quarter: 2006Q1

REPORT INFORMATION
  Report Type: 
  Country: None (occurrence: None)
  Receive Date: 20060214
  Receipt Date: 20060210
  Transmission Date: 20060701
  Serious: Yes (Hospitalization)
  Sender: FDA-Public Use
  Company Number: HQWYE455008NOV05

PATIENT
  Sex: Male

DRUGS (3)
  1. CORDARONE [Suspect]
     Indication: ARRHYTHMIA
     Dosage: 200 MG
     Route: 048
     Dates: start: 20030101
  2. MARCUMAR [Concomitant]
  3. COVERSUM (PERINDOPRIL) [Concomitant]

REACTIONS (3)
  - HYPERTHYROIDISM [None]
  - PROTHROMBIN TIME RATIO DECREASED [None]
  - WEIGHT DECREASED [None]
